FAERS Safety Report 21407883 (Version 1)
Quarter: 2022Q4

REPORT INFORMATION
  Report Type: Spontaneous
  Country: DE (occurrence: DE)
  Receive Date: 20221004
  Receipt Date: 20221004
  Transmission Date: 20230112
  Serious: Yes (Hospitalization)
  Sender: FDA-Public Use
  Company Number: DE-ADRED-08023-01

PATIENT
  Age: 81 Year
  Sex: Male
  Weight: 62 kg

DRUGS (10)
  1. OLMESARTAN [Suspect]
     Active Substance: OLMESARTAN
     Indication: Product used for unknown indication
     Dosage: 2 DOSAGE FORMS DAILY; 20 MG, 1-0-1-0, UNIT DOSE : 1 DF , FREQUENCY : BD, MEDICATION ERRORS
  2. TORSEMIDE [Suspect]
     Active Substance: TORSEMIDE
     Indication: Product used for unknown indication
     Dosage: 1 DOSAGE FORMS DAILY; 10 MG, 1-0-0-0, UNIT DOSE : 1 DF , FREQUENCY : OD
  3. CETIRIZINE [Suspect]
     Active Substance: CETIRIZINE HYDROCHLORIDE
     Indication: Product used for unknown indication
     Dosage: 1 DOSAGE FORMS DAILY; 10 MG, 0-0-1-0, UNIT DOSE : 1 DF , FREQUENCY : OD, MEDICATION ERRORS
  4. TAMSULOSIN [Concomitant]
     Active Substance: TAMSULOSIN
     Indication: Product used for unknown indication
     Dosage: 1 DOSAGE FORMS DAILY; 0.4 MG, 0-0-1-0, UNIT DOSE : 1 DF , FREQUENCY : OD
  5. MINOXIDIL [Concomitant]
     Active Substance: MINOXIDIL
     Indication: Product used for unknown indication
     Dosage: 1 DOSAGE FORMS DAILY; 10 MG, 0.5-0-0.5-0, UNIT DOSE : 0.5 DF , FREQUENCY : BD
  6. CHOLECALCIFEROL [Concomitant]
     Active Substance: CHOLECALCIFEROL
     Indication: Product used for unknown indication
     Dosage: 20000 IU, NK, CAPSULES
  7. METAMIZOLE [Concomitant]
     Active Substance: METAMIZOLE
     Indication: Product used for unknown indication
     Dosage: 4 DOSAGE FORMS DAILY; 500 MG, 1-1-1-1, UNIT DOSE : 1 DF , FREQUENCY : 4 TIMES A DAY
  8. TAPENTADOL [Concomitant]
     Active Substance: TAPENTADOL
     Indication: Product used for unknown indication
     Dosage: 2 DOSAGE FORMS DAILY; 50 MG, 1-0-1-0, UNIT DOSE : 1 DF , FREQUENCY : BD
  9. CARVEDILOL [Concomitant]
     Active Substance: CARVEDILOL
     Indication: Product used for unknown indication
     Dosage: 1 DOSAGE FORMS DAILY; 25 MG, 0.5-0-0.5-0, UNIT DOSE : 0.5 DF , FREQUENCY : BD
  10. SODIUM BICARBONATE [Concomitant]
     Active Substance: SODIUM BICARBONATE
     Indication: Product used for unknown indication
     Dosage: 2 DOSAGE FORMS DAILY; 1-0-1-0, UNIT DOSE : 1 DF , FREQUENCY : BD

REACTIONS (7)
  - Diarrhoea [Unknown]
  - Product monitoring error [Unknown]
  - Weight decreased [Unknown]
  - Product prescribing error [Unknown]
  - Pruritus [Unknown]
  - Diarrhoea [Unknown]
  - Nausea [Unknown]
